FAERS Safety Report 19216168 (Version 1)
Quarter: 2021Q2

REPORT INFORMATION
  Report Type: Report from Study
  Country: PK (occurrence: US)
  Receive Date: 20210505
  Receipt Date: 20210505
  Transmission Date: 20210717
  Serious: Yes (Other)
  Sender: FDA-Public Use
  Company Number: PK-PFIZER INC-2021468702

PATIENT

DRUGS (2)
  1. HEPARIN SODIUM. [Suspect]
     Active Substance: HEPARIN SODIUM
     Indication: SUPERIOR SAGITTAL SINUS THROMBOSIS
     Dosage: UNK
     Route: 065
  2. UROKINASE [Suspect]
     Active Substance: UROKINASE
     Indication: SUPERIOR SAGITTAL SINUS THROMBOSIS
     Route: 065

REACTIONS (1)
  - Subdural haematoma [Unknown]
